FAERS Safety Report 17435995 (Version 1)
Quarter: 2020Q1

REPORT INFORMATION
  Report Type: Spontaneous
  Country: GB (occurrence: GB)
  Receive Date: 20200219
  Receipt Date: 20200219
  Transmission Date: 20200409
  Serious: Yes (Other)
  Sender: FDA-Public Use
  Company Number: GB-009507513-2002GBR005550

PATIENT
  Sex: Female

DRUGS (1)
  1. SINEMET [Suspect]
     Active Substance: CARBIDOPA\LEVODOPA
     Dosage: UNK
     Route: 048

REACTIONS (4)
  - Quality of life decreased [Unknown]
  - Drug ineffective [Unknown]
  - Parkinson^s disease [Unknown]
  - Adverse drug reaction [Unknown]
